FAERS Safety Report 4725883-7 (Version None)
Quarter: 2005Q3

REPORT INFORMATION
  Report Type: 
  Country: None (occurrence: None)
  Receive Date: 20050727
  Receipt Date: 20050721
  Transmission Date: 20060218
  Serious: Yes (Hospitalization)
  Sender: FDA-Public Use
  Company Number: CA-MERCK-0507CAN00170

PATIENT
  Age: 48 Year
  Sex: Female

DRUGS (2)
  1. PROSCAR [Suspect]
     Indication: BENIGN PROSTATIC HYPERPLASIA
     Route: 048
     Dates: start: 20050501
  2. [THERAPY UNSPECIFIED] [Concomitant]
     Indication: HYPERSENSITIVITY
     Route: 065

REACTIONS (3)
  - EAR PAIN [None]
  - TRANSMISSION OF DRUG VIA SEMEN [None]
  - UTERINE SPASM [None]
